FAERS Safety Report 7502289-9 (Version None)
Quarter: 2011Q2

REPORT INFORMATION
  Report Type: 
  Country: None (occurrence: None)
  Receive Date: 20110525
  Receipt Date: 20100124
  Transmission Date: 20111010
  Serious: Yes (Death, Other)
  Sender: FDA-Public Use
  Company Number: US-BAYER-201012057NA

PATIENT
  Age: 46 Year
  Sex: Male
  Weight: 100 kg

DRUGS (32)
  1. FENTANYL [Concomitant]
     Dosage: UNK
     Route: 042
     Dates: start: 20000121, end: 20000121
  2. HEPARIN [Concomitant]
     Dosage: 53000 U, UNK
     Route: 042
     Dates: start: 20000120, end: 20000120
  3. THIOPENTAL SODIUM [Concomitant]
     Dosage: 300 MG, UNK
     Route: 042
     Dates: start: 20000120, end: 20000120
  4. MIDAZOLAM HCL [Concomitant]
     Dosage: 2 MG, UNK
     Route: 042
     Dates: start: 20000120, end: 20000120
  5. NITROGLYCERIN [Concomitant]
     Dosage: 300 MCG
     Route: 042
     Dates: start: 20000120, end: 20000120
  6. DOPAMINE HCL [Concomitant]
     Dosage: UNK (DRIP)
     Route: 042
     Dates: start: 20000120, end: 20000120
  7. DOPAMINE HCL [Concomitant]
     Dosage: UNK (DRIP)
     Route: 042
     Dates: start: 20000121, end: 20000121
  8. AMICAR [Concomitant]
     Dosage: UNK (DRIP)
     Route: 042
     Dates: start: 20000120, end: 20000120
  9. VANCOMYCIN [Concomitant]
     Dosage: 1 G, UNK
     Route: 042
     Dates: start: 20000120, end: 20000120
  10. INSULIN [Concomitant]
     Dosage: 53 U, UNK
     Route: 042
     Dates: start: 20000121, end: 20000121
  11. NITROGLYCERIN [Concomitant]
     Dosage: UNK, (DRIP)
     Route: 042
     Dates: start: 20000121, end: 20000121
  12. EPINEPHRINE [Concomitant]
     Dosage: UNK (DRIP)
     Route: 042
     Dates: start: 20000121, end: 20000121
  13. TRASYLOL [Suspect]
     Indication: THORACIC OPERATION
     Dosage: 50 ML/HR INFUSION
     Route: 042
     Dates: start: 20000121, end: 20000121
  14. SUCCINYLCHOLINE CHLORIDE [Concomitant]
     Dosage: 140 MG, UNK
     Route: 042
     Dates: start: 20000120, end: 20000120
  15. PROPOFOL [Concomitant]
     Dosage: UNK (DRIP)
     Route: 042
     Dates: start: 20000120, end: 20000120
  16. LASIX [Concomitant]
     Dosage: UNK
     Route: 042
     Dates: start: 20000121, end: 20000121
  17. PAPAVERINE [Concomitant]
     Dosage: 60 MG, UNK
     Route: 042
     Dates: start: 20000121, end: 20000121
  18. METHYLENE BLUE [Concomitant]
     Dosage: 3 ML, UNK
     Route: 042
     Dates: start: 20000121, end: 20000121
  19. VECURONIUM BROMIDE [Concomitant]
     Dosage: 15 MG, UNK
     Route: 042
     Dates: start: 20000120, end: 20000120
  20. LABETALOL [Concomitant]
     Dosage: 20 MCG
     Route: 042
     Dates: start: 20000120, end: 20000120
  21. LEVOPHED [Concomitant]
     Dosage: UNK
     Route: 042
     Dates: start: 20000121, end: 20000121
  22. PLATELETS [Concomitant]
     Dosage: 6 U, UNK
     Route: 042
     Dates: start: 20000120, end: 20000120
  23. FENTANYL [Concomitant]
     Dosage: 500 MCG
     Route: 042
     Dates: start: 20000120, end: 20000120
  24. ESMOLOL [Concomitant]
     Dosage: 10 MG, UNK
     Route: 042
     Dates: start: 20000120, end: 20000120
  25. GENTAMYCIN SULFATE [Concomitant]
     Dosage: 80 MG, UNK
     Route: 042
     Dates: start: 20000120, end: 20000120
  26. ALBUMIN (HUMAN) [Concomitant]
     Dosage: 250 ML, UNK
     Route: 042
     Dates: start: 20000121, end: 20000121
  27. RED BLOOD CELLS [Concomitant]
     Dosage: 13 U, UNK
     Route: 042
     Dates: start: 20000120, end: 20000120
  28. FRESH FROZEN PLASMA [Concomitant]
     Dosage: 4 U, UNK
     Route: 042
     Dates: start: 20000120, end: 20000120
  29. TRASYLOL [Suspect]
     Indication: MEDIASTINAL HAEMORRHAGE
  30. MIDAZOLAM HCL [Concomitant]
     Dosage: 2 MG, UNK
     Route: 042
     Dates: start: 20000121, end: 20000121
  31. ANCEF [Concomitant]
     Dosage: UNK
     Route: 042
     Dates: start: 20000120, end: 20000120
  32. NEOSYNEPHRINE [Concomitant]
     Dosage: UNK (DRIP)
     Route: 042
     Dates: start: 20000121, end: 20000121

REACTIONS (14)
  - ANXIETY [None]
  - MYOCARDIAL INFARCTION [None]
  - ANHEDONIA [None]
  - RENAL IMPAIRMENT [None]
  - UNEVALUABLE EVENT [None]
  - DEATH [None]
  - PAIN [None]
  - MULTI-ORGAN FAILURE [None]
  - RENAL FAILURE [None]
  - FEAR [None]
  - RENAL INJURY [None]
  - EMOTIONAL DISTRESS [None]
  - INJURY [None]
  - STRESS [None]
